FAERS Safety Report 24359633 (Version 1)
Quarter: 2024Q3

REPORT INFORMATION
  Report Type: Spontaneous
  Country: US (occurrence: US)
  Receive Date: 20240924
  Receipt Date: 20240924
  Transmission Date: 20241017
  Serious: No
  Sender: GILEAD
  Company Number: US-GILEAD-2024-0688378

PATIENT
  Sex: Male

DRUGS (7)
  1. BIKTARVY [Suspect]
     Active Substance: BICTEGRAVIR SODIUM\EMTRICITABINE\TENOFOVIR ALAFENAMIDE FUMARATE
     Indication: HIV infection
     Dosage: UNK
     Route: 065
  2. DEXLANSOPRAZOLE [Concomitant]
     Active Substance: DEXLANSOPRAZOLE
     Indication: Gastrointestinal disorder
  3. XANAX [Concomitant]
     Active Substance: ALPRAZOLAM
     Indication: Memory impairment
  4. MEMANTINE [Concomitant]
     Active Substance: MEMANTINE
     Indication: Memory impairment
  5. PROPRANOLOL [Concomitant]
     Active Substance: PROPRANOLOL HYDROCHLORIDE
     Indication: Memory impairment
  6. VILAZODONE [Concomitant]
     Active Substance: VILAZODONE
     Indication: Memory impairment
  7. VYVANSE [Concomitant]
     Active Substance: LISDEXAMFETAMINE DIMESYLATE
     Indication: Memory impairment

REACTIONS (1)
  - Viral load increased [Not Recovered/Not Resolved]
